FAERS Safety Report 11836266 (Version 1)
Quarter: 2015Q4

REPORT INFORMATION
  Report Type: Spontaneous
  Country: US (occurrence: None)
  Receive Date: 20151214
  Receipt Date: 20151214
  Transmission Date: 20160305
  Serious: No
  Sender: FDA-Public Use
  Company Number: None

PATIENT
  Age: 69 Year
  Sex: Male

DRUGS (1)
  1. LANCUS VIAL 100 UNITS/ML SANOFI AVENTIS [Suspect]
     Active Substance: LANSOPRAZOLE
     Dosage: 100 UNITS/ML

REACTIONS (2)
  - Blood glucose fluctuation [None]
  - Product container seal issue [None]

NARRATIVE: CASE EVENT DATE: 20151207
